FAERS Safety Report 12345636 (Version 1)
Quarter: 2016Q2

REPORT INFORMATION
  Report Type: Spontaneous
  Country: GB (occurrence: GB)
  Receive Date: 20160509
  Receipt Date: 20160509
  Transmission Date: 20160815
  Serious: Yes (Hospitalization)
  Sender: FDA-Public Use
  Company Number: GB-HOSPIRA-3277271

PATIENT
  Age: 32 Year
  Sex: Male

DRUGS (9)
  1. CEFTRIAXONE SODIUM. [Suspect]
     Active Substance: CEFTRIAXONE SODIUM
     Indication: STREPTOCOCCAL ENDOCARDITIS
     Dosage: CUMULATIVE DOSE: 4 G
     Route: 042
     Dates: start: 20160210, end: 20160211
  2. PARACETAMOL [Concomitant]
     Active Substance: ACETAMINOPHEN
     Indication: PAIN
     Dosage: 6 HOURLY
     Route: 048
     Dates: start: 20160204
  3. AMILORIDE [Concomitant]
     Active Substance: AMILORIDE
     Indication: PRODUCT USED FOR UNKNOWN INDICATION
     Dosage: CUMULATIVE DOSAGE: 25 MG
     Route: 048
     Dates: start: 20160203, end: 20160210
  4. TINZAPARIN SODIUM [Concomitant]
     Active Substance: TINZAPARIN SODIUM
     Indication: PROPHYLAXIS
     Dosage: CUMULATIVE DOSAGE: 85500 IU; 4,500 UNITS/ 0.45 ML
     Route: 058
     Dates: start: 20160120
  5. ASPIRIN                            /00002701/ [Concomitant]
     Active Substance: ASPIRIN
     Indication: PRODUCT USED FOR UNKNOWN INDICATION
     Dosage: CUMULATIVE DOSAGE: 1425 MG
     Route: 048
     Dates: start: 20160120, end: 20160207
  6. OMEPRAZOLE. [Concomitant]
     Active Substance: OMEPRAZOLE
     Indication: PRODUCT USED FOR UNKNOWN INDICATION
     Dosage: TWICE A DAY THEN DECREASED TO ONCE A DAY
     Route: 048
     Dates: start: 20160203, end: 20160212
  7. FUROSEMIDE. [Concomitant]
     Active Substance: FUROSEMIDE
     Indication: PRODUCT USED FOR UNKNOWN INDICATION
     Dosage: CUMULATIVE DOSAGE: 100 MG
     Route: 048
     Dates: start: 20160203, end: 20160211
  8. BISOPROLOL [Concomitant]
     Active Substance: BISOPROLOL
     Indication: PRODUCT USED FOR UNKNOWN INDICATION
     Dosage: CUMULATIVE DOSAGE: 7.5 MG; RESTARTED AND STILL ON THIS AT DISCHARGE
     Route: 048
     Dates: start: 20160205, end: 20160210
  9. CRYSTAPEN [Suspect]
     Active Substance: PENICILLIN G SODIUM
     Indication: STREPTOCOCCAL ENDOCARDITIS
     Dosage: CUMULATIVE DOSE: 136.799 G
     Route: 040
     Dates: start: 20160120, end: 20160210

REACTIONS (5)
  - Rash maculo-papular [Recovered/Resolved]
  - Retinal exudates [Recovered/Resolved]
  - Erythema multiforme [Recovered/Resolved]
  - Drug cross-reactivity [Unknown]
  - Mouth ulceration [Recovered/Resolved]

NARRATIVE: CASE EVENT DATE: 20160208
